FAERS Safety Report 5059196-3 (Version None)
Quarter: 2006Q3

REPORT INFORMATION
  Report Type: 
  Country: None (occurrence: None)
  Receive Date: 20060718
  Receipt Date: 20060705
  Transmission Date: 20061208
  Serious: Yes (Other)
  Sender: FDA-Public Use
  Company Number: VNL_0160_2006

PATIENT
  Sex: Male

DRUGS (1)
  1. APOKYN [Suspect]
     Dosage: DF SC
     Route: 058
     Dates: start: 20060601

REACTIONS (2)
  - ACUTE PSYCHOSIS [None]
  - SUICIDE ATTEMPT [None]
